FAERS Safety Report 7433479-1 (Version None)
Quarter: 2011Q2

REPORT INFORMATION
  Report Type: 
  Country: None (occurrence: None)
  Receive Date: 20110422
  Receipt Date: 20110111
  Transmission Date: 20111010
  Serious: No
  Sender: FDA-Public Use
  Company Number: US-MUTUAL PHARMACEUTICAL COMPANY, INC.-CLCY20110003

PATIENT
  Age: 62 Year
  Sex: Female
  Weight: 45.4 kg

DRUGS (4)
  1. FENTANYL [Concomitant]
     Indication: BACK PAIN
     Dosage: 50 MCG/H
     Route: 062
  2. PREMARIN [Concomitant]
     Indication: HORMONE REPLACEMENT THERAPY
     Route: 048
  3. VALIUM [Concomitant]
     Indication: BACK PAIN
     Dosage: 10 MG AS NEEDED
     Route: 048
  4. COLCRYS [Suspect]
     Indication: FAMILIAL MEDITERRANEAN FEVER
     Route: 048
     Dates: start: 20110103, end: 20110107

REACTIONS (4)
  - ERYTHEMA [None]
  - SWOLLEN TONGUE [None]
  - OROPHARYNGEAL BLISTERING [None]
  - SWELLING FACE [None]
